FAERS Safety Report 6742697 (Version 2)
Quarter: 2013Q4

REPORT INFORMATION
  Report Type: Spontaneous
  Country: US (occurrence: US)
  Receive Date: 20080829
  Receipt Date: 20131017
  Transmission Date: 20140711
  Serious: Yes (Other)
  Sender: FDA-Public Use
  Company Number: US-BAYER-200826311NA

PATIENT
  Age: 31 Year
  Sex: Female

DRUGS (1)
  1. MIRENA [Suspect]
     Dosage: 20 UG\ DAYS CONTINUOUS
     Route: 015
     Dates: start: 2006, end: 2011

REACTIONS (6)
  - Uterine perforation [None]
  - Fungal infection [Unknown]
  - Menstruation irregular [None]
  - Emotional distress [None]
  - Pain [None]
  - Injury [None]
